FAERS Safety Report 5823304-4 (Version None)
Quarter: 2008Q3

REPORT INFORMATION
  Report Type: 
  Country: None (occurrence: None)
  Receive Date: 20080725
  Receipt Date: 20070604
  Transmission Date: 20090109
  Serious: No
  Sender: FDA-Public Use
  Company Number: US-AMGEN-KDL227705

PATIENT
  Sex: Female
  Weight: 79.5 kg

DRUGS (4)
  1. PROCRIT [Suspect]
     Indication: PRE-EXISTING DISEASE
     Dates: start: 20060101, end: 20070401
  2. RIBAVIRIN [Concomitant]
  3. CYANOCOBALAMIN [Concomitant]
  4. INFERGEN [Concomitant]

REACTIONS (3)
  - ASTHENIA [None]
  - BLOOD COUNT ABNORMAL [None]
  - PALLOR [None]
